FAERS Safety Report 12418694 (Version 1)
Quarter: 2016Q2

REPORT INFORMATION
  Report Type: Spontaneous
  Country: US (occurrence: None)
  Receive Date: 20160527
  Receipt Date: 20160527
  Transmission Date: 20160815
  Serious: Yes (Hospitalization, Other)
  Sender: FDA-Public Use
  Company Number: None

PATIENT
  Age: 79 Year
  Sex: Male
  Weight: 48 kg

DRUGS (1)
  1. BEVACIZUMAB [Suspect]
     Active Substance: BEVACIZUMAB
     Dosage: MONTHLY INTRAVITREAL
     Dates: start: 20150105, end: 20160405

REACTIONS (3)
  - Nephrotic syndrome [None]
  - Diabetic nephropathy [None]
  - Kidney fibrosis [None]

NARRATIVE: CASE EVENT DATE: 20160512
